FAERS Safety Report 13377147 (Version 1)
Quarter: 2017Q1

REPORT INFORMATION
  Report Type: Spontaneous
  Country: US (occurrence: US)
  Receive Date: 20170328
  Receipt Date: 20170328
  Transmission Date: 20170429
  Serious: No
  Sender: FDA-Public Use
  Company Number: US-SA-2016SA116564

PATIENT
  Age: 67 Year
  Sex: Female

DRUGS (1)
  1. LEUKINE [Suspect]
     Active Substance: SARGRAMOSTIM
     Indication: BLOOD COUNT
     Dosage: FREQUENCY:  FIVE TIMES A WEEK
     Route: 065
     Dates: start: 20160613, end: 20160617

REACTIONS (2)
  - Pruritus [Not Recovered/Not Resolved]
  - Injection site erythema [Not Recovered/Not Resolved]

NARRATIVE: CASE EVENT DATE: 201606
